FAERS Safety Report 9739300 (Version 1)
Quarter: 2013Q4

REPORT INFORMATION
  Report Type: Spontaneous
  Country: US (occurrence: US)
  Receive Date: 20131209
  Receipt Date: 20131209
  Transmission Date: 20140711
  Serious: No
  Sender: FDA-Public Use
  Company Number: US-ABBVIE-12P-163-1017430-00

PATIENT
  Sex: Female

DRUGS (6)
  1. VICODIN ES [Suspect]
     Indication: ARTHRALGIA
     Dosage: 10/660 MG
     Dates: start: 2002, end: 201210
  2. VICODIN HP 10/300 (MIKART) [Suspect]
     Indication: ARTHRALGIA
     Dosage: 10/300 MILLIGRAMS
     Dates: start: 201210
  3. TYLENOL EXTRA STRENGTH [Concomitant]
     Indication: PAIN
  4. ATENOLOL [Concomitant]
     Indication: HYPERTENSION
  5. LIDODERM [Concomitant]
     Indication: ARTHRALGIA
  6. TAPAZOL [Concomitant]
     Indication: THYROID DISORDER

REACTIONS (5)
  - Drug ineffective [Not Recovered/Not Resolved]
  - Pain [Not Recovered/Not Resolved]
  - Suspected counterfeit product [Unknown]
  - Heart rate irregular [Recovered/Resolved]
  - Blood pressure increased [Recovered/Resolved]
